FAERS Safety Report 9871479 (Version 1)
Quarter: 2014Q1

REPORT INFORMATION
  Report Type: Spontaneous
  Country: US (occurrence: None)
  Receive Date: 20140204
  Receipt Date: 20140204
  Transmission Date: 20141002
  Serious: No
  Sender: FDA-Public Use
  Company Number: None

PATIENT
  Age: 82 Year
  Sex: Female
  Weight: 70.31 kg

DRUGS (6)
  1. AMOXICILLIN [Suspect]
     Indication: TOOTH ABSCESS
     Route: 048
     Dates: start: 20131206, end: 20131213
  2. AMOXICILLIN [Suspect]
     Indication: ENDODONTIC PROCEDURE
     Route: 048
     Dates: start: 20131206, end: 20131213
  3. ALEVE [Concomitant]
  4. TUMS [Concomitant]
  5. EQUATE SLEEP AID [Concomitant]
  6. MELATONIN [Concomitant]

REACTIONS (1)
  - Haematochezia [None]
